FAERS Safety Report 13259297 (Version 1)
Quarter: 2017Q1

REPORT INFORMATION
  Report Type: Spontaneous
  Country: US (occurrence: US)
  Receive Date: 20170222
  Receipt Date: 20170222
  Transmission Date: 20170428
  Serious: No
  Sender: FDA-Public Use
  Company Number: US-PFIZER INC-2016451908

PATIENT
  Age: 48 Year
  Sex: Female

DRUGS (23)
  1. LYRICA [Suspect]
     Active Substance: PREGABALIN
     Dosage: 75 MG, 2X/DAY
     Route: 048
     Dates: start: 20160920
  2. CELEBREX [Concomitant]
     Active Substance: CELECOXIB
     Indication: PAIN
     Dosage: 200 MG, AS NEEDED (1 PO TWICE A DAY (BID) PRN PAIN)
     Route: 048
  3. IMODIUM [Concomitant]
     Active Substance: LOPERAMIDE HYDROCHLORIDE
     Dosage: UNK UNK, AS NEEDED (2 MG -125 MG)
  4. VITAMIN D3 [Concomitant]
     Active Substance: CHOLECALCIFEROL
     Dosage: 5000 IU, 1X/DAY (1 PO QD)
     Route: 048
  5. LEVOFLOXACIN. [Concomitant]
     Active Substance: LEVOFLOXACIN
     Dosage: 500 MG, UNK (FOR TEMPERATURE OF 100.5 F OR HIGHER: NOTIFY PHYSICIAN AND TAKE 1 TABLET BY MOUTH DAILY
  6. ADVIL [Concomitant]
     Active Substance: IBUPROFEN
     Dosage: 200 MG, AS NEEDED
  7. FLONASE [Concomitant]
     Active Substance: FLUTICASONE PROPIONATE
     Dosage: 50 UG, UNK (AS DIRECTED)
  8. CELEBREX [Concomitant]
     Active Substance: CELECOXIB
     Dosage: 200 MG, 2X/DAY
     Route: 048
  9. CIMETIDINE [Concomitant]
     Active Substance: CIMETIDINE
     Dosage: 800 MG, 2X/DAY (1 PO TWICE A DAY)
     Route: 048
  10. HYDROCHLOROTHIAZIDE. [Concomitant]
     Active Substance: HYDROCHLOROTHIAZIDE
     Indication: OEDEMA
     Dosage: 25 MG, AS NEEDED (1 PO QD PRN)
     Route: 048
  11. AMOXICILLIN. [Concomitant]
     Active Substance: AMOXICILLIN
     Dosage: 500 MG, 2X/DAY
  12. BENADRYL [Concomitant]
     Active Substance: DIPHENHYDRAMINE HYDROCHLORIDE
     Dosage: 25 MG, AS NEEDED
  13. PROCHLORPERAZINE MALEATE. [Concomitant]
     Active Substance: PROCHLORPERAZINE MALEATE
     Indication: VOMITING
  14. TYLENOL [Concomitant]
     Active Substance: ACETAMINOPHEN
     Dosage: 325 MG, AS NEEDED
  15. SUMATRIPTAN. [Concomitant]
     Active Substance: SUMATRIPTAN
     Indication: MIGRAINE
     Dosage: 50 MG, AS NEEDED (1 PO Q 6 HOURS (QID) PRN)
  16. RITALIN [Concomitant]
     Active Substance: METHYLPHENIDATE HYDROCHLORIDE
     Dosage: 5 MG, 2X/DAY (1 PO TWICE A DAY IN AM AND AT NOON)
     Route: 048
  17. OMEPRAZOLE. [Concomitant]
     Active Substance: OMEPRAZOLE
     Dosage: 20 MG, 1X/DAY (1 PO QD)
     Route: 048
  18. PROCHLORPERAZINE MALEATE. [Concomitant]
     Active Substance: PROCHLORPERAZINE MALEATE
     Indication: NAUSEA
     Dosage: 10 MG, AS NEEDED (1 PO Q 6 HOURS PRN)
  19. STOOL SOFTENER [Concomitant]
     Dosage: 100 MG, AS NEEDED
  20. TOPIRAMATE. [Concomitant]
     Active Substance: TOPIRAMATE
     Dosage: 25 MG, 1X/DAY (1 PO Q DAY AT BEDTIME (HS))
     Route: 048
  21. AMBIEN [Concomitant]
     Active Substance: ZOLPIDEM TARTRATE
     Dosage: 5 MG, 1X/DAY (1 PO Q DAY AT BEDTIME (HS))
     Route: 048
  22. DULOXETINE. [Concomitant]
     Active Substance: DULOXETINE
     Dosage: 30 MG, 1X/DAY (1 PO Q DAY)
     Route: 048
  23. NORCO [Concomitant]
     Active Substance: ACETAMINOPHEN\HYDROCODONE BITARTRATE
     Indication: PAIN
     Dosage: 1 DF, AS NEEDED [HYDROCODONE BITARTRATE 7.5 MG/ PARACETAMOL 325 MG] (1 PO Q 6 HOURS (QID) PRN)
     Route: 048

REACTIONS (1)
  - Withdrawal syndrome [Unknown]
